FAERS Safety Report 23987075 (Version 2)
Quarter: 2024Q2

REPORT INFORMATION
  Report Type: Report from Study
  Country: US (occurrence: US)
  Receive Date: 20240618
  Receipt Date: 20240626
  Transmission Date: 20240716
  Serious: Yes (Hospitalization, Other)
  Sender: FDA-Public Use
  Company Number: US-GILEAD-2024-0675776

PATIENT
  Age: 82 Year
  Sex: Female

DRUGS (3)
  1. AMBRISENTAN [Suspect]
     Active Substance: AMBRISENTAN
     Indication: Pulmonary hypertension
     Dosage: 10 MG, QD
     Route: 065
     Dates: start: 20230828
  2. ADEMPAS [Concomitant]
     Active Substance: RIOCIGUAT
  3. ELIQUIS [Concomitant]
     Active Substance: APIXABAN

REACTIONS (3)
  - Gastrointestinal haemorrhage [Unknown]
  - Hypotension [Unknown]
  - Anaemia [Unknown]

NARRATIVE: CASE EVENT DATE: 20240531
